FAERS Safety Report 22135026 (Version 4)
Quarter: 2023Q2

REPORT INFORMATION
  Report Type: Report from Study
  Country: HU (occurrence: HU)
  Receive Date: 20230324
  Receipt Date: 20230427
  Transmission Date: 20230722
  Serious: Yes (Death, Hospitalization, Other)
  Sender: FDA-Public Use
  Company Number: HU-002147023-NVSC2023HU065333

PATIENT
  Sex: Female

DRUGS (3)
  1. KISQALI [Suspect]
     Active Substance: RIBOCICLIB
     Indication: Product used for unknown indication
     Dosage: UNK UNK, TID (DAILY 1X 3)
     Route: 065
     Dates: start: 20220126, end: 20221017
  2. KISQALI [Suspect]
     Active Substance: RIBOCICLIB
     Dosage: 3 DOSAGE FORM, QD
     Route: 048
     Dates: start: 20220501
  3. EXEMIN [Concomitant]
     Indication: Product used for unknown indication
     Dosage: 1 DOSAGE FORM, QD
     Route: 065

REACTIONS (6)
  - Metastases to central nervous system [Fatal]
  - Asthenia [Fatal]
  - Dizziness [Fatal]
  - Neutropenia [Fatal]
  - Cerebrovascular accident [Fatal]
  - Disease progression [Fatal]

NARRATIVE: CASE EVENT DATE: 20221017
